FAERS Safety Report 6862262-0 (Version None)
Quarter: 2010Q3

REPORT INFORMATION
  Report Type: 
  Country: None (occurrence: None)
  Receive Date: 20100721
  Receipt Date: 20100708
  Transmission Date: 20110219
  Serious: Yes (Other)
  Sender: FDA-Public Use
  Company Number: US-ELI_LILLY_AND_COMPANY-US201006007263

PATIENT
  Sex: Female

DRUGS (7)
  1. FORTEO [Suspect]
     Dosage: 20 UG, UNKNOWN
     Dates: start: 20100504
  2. CALCIUM PHOSPHATE W/COLECALCIFEROL [Concomitant]
     Dosage: UNK, UNKNOWN
  3. CARVEDILOL [Concomitant]
     Dosage: 6.25 MG, UNKNOWN
  4. DIVALPROEX SODIUM [Concomitant]
     Dosage: 125 MG, UNKNOWN
  5. FOLIC ACID [Concomitant]
     Dosage: 1 MG, UNKNOWN
  6. ISOSORBIDE DINITRATE [Concomitant]
     Dosage: 20 MG, UNKNOWN
  7. SINGULAIR [Concomitant]
     Dosage: 10 MG, UNKNOWN

REACTIONS (3)
  - INTENTIONAL DRUG MISUSE [None]
  - PAIN IN EXTREMITY [None]
  - SOFT TISSUE NEOPLASM [None]
